FAERS Safety Report 11625586 (Version 18)
Quarter: 2017Q2

REPORT INFORMATION
  Report Type: Report from Study
  Country: CA (occurrence: CA)
  Receive Date: 20151013
  Receipt Date: 20170427
  Transmission Date: 20170829
  Serious: Yes (Hospitalization, Other)
  Sender: FDA-Public Use
  Company Number: PHHY2015CA121326

PATIENT
  Age: 64 Year
  Sex: Female

DRUGS (7)
  1. SANDOSTATIN LAR DEPOT [Suspect]
     Active Substance: OCTREOTIDE ACETATE
     Indication: GASTROINTESTINAL ANGIODYSPLASIA
     Dosage: 20 MG, QMO (ONCE A MONTH)
     Route: 030
     Dates: start: 20150807, end: 20160609
  2. NOVO-SPIROTON [Concomitant]
     Indication: PRODUCT USED FOR UNKNOWN INDICATION
     Route: 065
  3. VITAMIN B-1 [Concomitant]
     Active Substance: THIAMINE
     Indication: PRODUCT USED FOR UNKNOWN INDICATION
     Route: 065
  4. D-TABS [Concomitant]
     Active Substance: CHOLECALCIFEROL
     Indication: PRODUCT USED FOR UNKNOWN INDICATION
     Route: 065
  5. SANDOSTATIN LAR DEPOT [Suspect]
     Active Substance: OCTREOTIDE ACETATE
     Dosage: 30 MG, QMO  (ONCE A MONTH)
     Route: 030
     Dates: start: 20160908
  6. OXAZEPAM. [Concomitant]
     Active Substance: OXAZEPAM
     Indication: PRODUCT USED FOR UNKNOWN INDICATION
     Route: 065
  7. VENTOLIN [Concomitant]
     Active Substance: ALBUTEROL SULFATE
     Indication: PRODUCT USED FOR UNKNOWN INDICATION
     Route: 065

REACTIONS (27)
  - Fall [Unknown]
  - Renal disorder [Unknown]
  - General physical health deterioration [Unknown]
  - Periorbital oedema [Unknown]
  - Blood pressure increased [Unknown]
  - Post procedural complication [Unknown]
  - Platelet count decreased [Unknown]
  - Nervousness [Unknown]
  - Diarrhoea [Unknown]
  - Heart rate increased [Unknown]
  - Fatigue [Unknown]
  - Cerebrovascular accident [Unknown]
  - Dyspnoea [Unknown]
  - Confusional state [Unknown]
  - Abdominal distension [Unknown]
  - Pneumonia [Unknown]
  - Pyrexia [Unknown]
  - Haemoglobin decreased [Unknown]
  - Pleural effusion [Unknown]
  - Ascites [Unknown]
  - Oedema peripheral [Unknown]
  - Kidney infection [Unknown]
  - Haemorrhage [Unknown]
  - Product use in unapproved indication [Unknown]
  - Speech disorder [Recovering/Resolving]
  - Blood pressure systolic increased [Unknown]
  - Weight decreased [Unknown]

NARRATIVE: CASE EVENT DATE: 20150807
